FAERS Safety Report 7180453-9 (Version None)
Quarter: 2010Q4

REPORT INFORMATION
  Report Type: 
  Country: None (occurrence: None)
  Receive Date: 20101221
  Receipt Date: 20101213
  Transmission Date: 20110411
  Serious: Yes (Other)
  Sender: FDA-Public Use
  Company Number: CHPA2010US18902

PATIENT
  Age: 66 Year
  Sex: Female

DRUGS (4)
  1. BENEFIBER W/ WHEAT DEXTRIN (NCH) [Suspect]
     Indication: BOWEL MOVEMENT IRREGULARITY
     Dosage: 3 TSP (1 TABLESPOON), QD
     Route: 048
     Dates: start: 20100801
  2. TOPROL-XL [Concomitant]
     Indication: HYPERTENSION
     Dosage: UNK, UNK
  3. AMIODARONE HCL [Concomitant]
     Dosage: UNK, UNK
  4. COUMADIN [Concomitant]
     Dosage: UNK, UNK

REACTIONS (5)
  - ABDOMINAL DISTENSION [None]
  - CARDIAC OPERATION [None]
  - FLATULENCE [None]
  - INCORRECT DOSE ADMINISTERED [None]
  - OFF LABEL USE [None]
